FAERS Safety Report 6065061-5 (Version None)
Quarter: 2009Q1

REPORT INFORMATION
  Report Type: 
  Country: None (occurrence: None)
  Receive Date: 20090203
  Receipt Date: 20090203
  Transmission Date: 20090719
  Serious: Yes (Hospitalization)
  Sender: FDA-Public Use
  Company Number: None

PATIENT
  Age: 33 Year
  Sex: Female
  Weight: 63.5036 kg

DRUGS (1)
  1. DEMEROL [Suspect]

REACTIONS (5)
  - DIARRHOEA [None]
  - MIGRAINE [None]
  - NONSPECIFIC REACTION [None]
  - PAIN [None]
  - VOMITING [None]
